FAERS Safety Report 8117141-8 (Version None)
Quarter: 2012Q1

REPORT INFORMATION
  Report Type: 
  Country: None (occurrence: None)
  Receive Date: 20120206
  Receipt Date: 20120131
  Transmission Date: 20120608
  Serious: Yes (Hospitalization, Other)
  Sender: FDA-Public Use
  Company Number: PHHY2011DE92118

PATIENT
  Sex: Female
  Weight: 66 kg

DRUGS (8)
  1. ZOMETA [Suspect]
     Indication: BONE DISORDER
     Dosage: 4 MG / 5 ML  FOR EVERY 4 WEEKS
     Route: 042
     Dates: start: 20110624
  2. SUTENT [Concomitant]
     Indication: RENAL CELL CARCINOMA
     Dosage: 37.5 MG,/ DAY
     Route: 048
     Dates: start: 20110620, end: 20111003
  3. FORTECORTIN [Concomitant]
     Dosage: 8MG/4MG/2MG
     Dates: start: 20111015
  4. VITAMIN D [Concomitant]
     Dosage: 400 IU, DAILY
     Route: 048
  5. CALCIUM [Concomitant]
     Dosage: 1000 MG, PER DAY
     Route: 048
  6. METOCLOPRAMIDE [Concomitant]
     Indication: NAUSEA
     Dosage: 12 MG, DAILY
     Route: 048
     Dates: start: 20110601
  7. NEXAVAR [Concomitant]
     Indication: METASTATIC RENAL CELL CARCINOMA
     Dosage: 400 MG, BID
     Route: 048
     Dates: start: 20111114
  8. BISOBETA [Concomitant]
     Indication: HYPERTENSION
     Dosage: 10 MG, DAILY
     Route: 048
     Dates: start: 20110701

REACTIONS (7)
  - EPILEPSY [None]
  - HYPERTENSION [None]
  - FALL [None]
  - SYNCOPE [None]
  - METASTASIS [None]
  - HAEMATOMA [None]
  - HAEMOPTYSIS [None]
